FAERS Safety Report 8782615 (Version 1)
Quarter: 2012Q4

REPORT INFORMATION
  Report Type: 
  Country: JP (occurrence: JP)
  Receive Date: 20120913
  Receipt Date: 20120913
  Transmission Date: 20130627
  Serious: Yes (Death, Life-Threatening)
  Sender: FDA-Public Use
  Company Number: JP-BAYER-201011005BYL

PATIENT
  Age: 75 Year
  Sex: Male
  Weight: 61 kg

DRUGS (11)
  1. NEXAVAR [Suspect]
     Indication: HEPATIC NEOPLASM MALIGNANT
     Dosage: 400 mg, QD
     Route: 048
     Dates: start: 20100222
  2. NEXAVAR [Suspect]
     Indication: HEPATIC NEOPLASM MALIGNANT
     Dosage: 800 mg (Daily Dose), , oral
     Route: 048
     Dates: start: 20100222, end: 20100226
  3. NEXAVAR [Suspect]
     Indication: HEPATIC NEOPLASM MALIGNANT
     Dosage: 600 mg, QD
     Route: 048
     Dates: start: 20100227, end: 20100318
  4. NEXAVAR [Suspect]
     Indication: HEPATIC NEOPLASM MALIGNANT
     Dosage: 200 mg, QD
     Dates: start: 20100415, end: 20100427
  5. LACTULOSE [Suspect]
     Indication: HYPERAMMONAEMIA
     Route: 048
  6. DAONIL [Concomitant]
     Indication: DIABETES MELLITUS
     Dosage: Daily dose 5 mg
     Route: 048
  7. BASEN [Concomitant]
     Indication: DIABETES MELLITUS
     Dosage: Daily dose .6 mg
     Route: 048
  8. URSO [Concomitant]
     Dosage: Daily dose 600 mg
     Route: 048
  9. NORVASC [Concomitant]
     Indication: HYPERTENSION
     Dosage: Daily dose 5 mg
     Route: 048
  10. LIVACT [Concomitant]
     Indication: HYPOALBUMINAEMIA
     Dosage: Daily dose 3 DF
     Route: 048
  11. TAKEPRON [Concomitant]
     Dosage: Daily dose 15 mg
     Route: 048

REACTIONS (4)
  - Platelet count decreased [Recovered/Resolved]
  - Hyperammonaemia [Recovering/Resolving]
  - Diarrhoea [Recovering/Resolving]
  - Hepatic cancer [Fatal]
